FAERS Safety Report 6519861-5 (Version None)
Quarter: 2009Q4

REPORT INFORMATION
  Report Type: 
  Country: None (occurrence: None)
  Receive Date: 20091228
  Receipt Date: 20091228
  Transmission Date: 20100525
  Serious: Yes (Hospitalization)
  Sender: FDA-Public Use
  Company Number: None

PATIENT
  Age: 15 Year
  Sex: Female
  Weight: 61.2356 kg

DRUGS (2)
  1. YAZ [Suspect]
     Indication: OVARIAN CYST
     Dosage: 1 PILL ONCE PER DAY PO, APPROXIMATELY 4 YEARS
     Route: 048
  2. YAZ [Suspect]
     Indication: PROPHYLAXIS
     Dosage: 1 PILL ONCE PER DAY PO, APPROXIMATELY 4 YEARS
     Route: 048

REACTIONS (4)
  - CHOLECYSTECTOMY [None]
  - GALLBLADDER DISORDER [None]
  - GALLBLADDER PAIN [None]
  - GASTROINTESTINAL DISORDER [None]
